FAERS Safety Report 5474427-3 (Version None)
Quarter: 2007Q4

REPORT INFORMATION
  Report Type: 
  Country: None (occurrence: None)
  Receive Date: 20071002
  Receipt Date: 20070921
  Transmission Date: 20080405
  Serious: Yes (Other)
  Sender: FDA-Public Use
  Company Number: US-JNJFOC-20070805783

PATIENT
  Sex: Female
  Weight: 60.78 kg

DRUGS (1)
  1. REMICADE [Suspect]
     Indication: ANAL FISTULA
     Dosage: REQUEST IN INCREASE DOSAGE FROM 5 TO 10 MG/KG AND TO DECREASE TIME INTERVAL FROM 8 TO 4 WEEKS
     Route: 042

REACTIONS (2)
  - FISTULA DISCHARGE [None]
  - WOUND SECRETION [None]
